FAERS Safety Report 14843282 (Version 1)
Quarter: 2018Q2

REPORT INFORMATION
  Report Type: Spontaneous
  Country: US (occurrence: US)
  Receive Date: 20180418
  Receipt Date: 20180418
  Transmission Date: 20180711
  Serious: Yes (Hospitalization)
  Sender: FDA-Public Use
  Company Number: None

PATIENT
  Age: 71 Year
  Sex: Female
  Weight: 84.5 kg

DRUGS (3)
  1. GEMCITABINE [Suspect]
     Active Substance: GEMCITABINE\GEMCITABINE HYDROCHLORIDE
     Indication: CHOLANGIOCARCINOMA
     Route: 042
     Dates: start: 20180413
  2. CISPLATIN. [Suspect]
     Active Substance: CISPLATIN
  3. COPANLISIB. [Suspect]
     Active Substance: COPANLISIB

REACTIONS (1)
  - Heart valve incompetence [None]

NARRATIVE: CASE EVENT DATE: 20180414
